FAERS Safety Report 8172097-7 (Version None)
Quarter: 2012Q1

REPORT INFORMATION
  Report Type: 
  Country: None (occurrence: None)
  Receive Date: 20120228
  Receipt Date: 20120215
  Transmission Date: 20120608
  Serious: Yes (Other)
  Sender: FDA-Public Use
  Company Number: PT-MYLANLABS-2012S1003632

PATIENT
  Age: 79 Year
  Sex: Female

DRUGS (8)
  1. PROPOFOL [Concomitant]
     Route: 065
  2. MIDAZOLAM [Concomitant]
     Route: 065
  3. VALPROIC ACID [Suspect]
     Indication: PROPHYLAXIS
     Route: 065
  4. MEROPENEM [Concomitant]
     Indication: STAPHYLOCOCCAL INFECTION
     Route: 065
  5. ALFENTANIL [Concomitant]
     Route: 065
  6. FLUCONAZOLE [Concomitant]
     Route: 065
  7. VANCOMYCIN [Suspect]
     Indication: STAPHYLOCOCCAL INFECTION
     Route: 065
  8. CEFTAZIDIME [Concomitant]
     Route: 065

REACTIONS (1)
  - TOXIC EPIDERMAL NECROLYSIS [None]
